FAERS Safety Report 4648999-2 (Version None)
Quarter: 2005Q2

REPORT INFORMATION
  Report Type: 
  Country: None (occurrence: None)
  Receive Date: 20050427
  Receipt Date: 20050412
  Transmission Date: 20051028
  Serious: Yes (Other)
  Sender: FDA-Public Use
  Company Number: 05-000261

PATIENT
  Age: 66 Year
  Sex: Female

DRUGS (20)
  1. ESTRACE [Suspect]
     Indication: HORMONE REPLACEMENT THERAPY
     Dosage: 1 MG
     Dates: start: 20000311, end: 20040301
  2. ESTRACE [Suspect]
     Indication: HORMONE REPLACEMENT THERAPY
     Dosage: .01%
     Dates: start: 20010109
  3. XALATAN [Concomitant]
  4. TIMOPTIC [Concomitant]
  5. AMOXICILLIN [Concomitant]
  6. LOTRONEX [Concomitant]
  7. DIPHENOXYLATE W/ATROPINE SULFATE (DIPHENOXYLATE ATROPINE SULFATE) [Concomitant]
  8. DYNEX [Concomitant]
  9. ZITHROMAX [Concomitant]
  10. LEVAQUIN [Concomitant]
  11. MURO 128 (SODIUM CHLORIDE) [Concomitant]
  12. PRED-FORTE (PREDNISOLONE ACETATE) [Concomitant]
  13. OCUFLOX [Concomitant]
  14. LORTAB [Concomitant]
  15. LOTEMAX [Concomitant]
  16. ACETAZOLAMIDE [Concomitant]
  17. VIGAMOX [Concomitant]
  18. OXYCODONE AND ASPIRIN (OXYCODONE TEREPHTHALATE, OXYCODONE HYDROCHLORID [Concomitant]
  19. METHAZOLAMIDE (METHAZOLAMIDE) [Concomitant]
  20. VESICOL [Concomitant]

REACTIONS (1)
  - OVARIAN CANCER [None]
